FAERS Safety Report 9536856 (Version 1)
Quarter: 2013Q3

REPORT INFORMATION
  Report Type: Spontaneous
  Country: US (occurrence: None)
  Receive Date: 20130918
  Receipt Date: 20130918
  Transmission Date: 20140515
  Serious: Yes (Hospitalization)
  Sender: FDA-Public Use
  Company Number: None

PATIENT
  Age: 59 Year
  Sex: Female
  Weight: 48.8 kg

DRUGS (5)
  1. DOCETAXEL (TAXOTERE) [Suspect]
     Indication: URETERIC CANCER METASTATIC
     Route: 042
     Dates: start: 20130821
  2. LAPATINIB [Suspect]
     Indication: URETERIC CANCER METASTATIC
     Route: 048
     Dates: start: 20130821, end: 20130828
  3. GABAPENTIN [Concomitant]
  4. METHADONE [Concomitant]
  5. MEGACE [Concomitant]

REACTIONS (7)
  - Nausea [None]
  - Vomiting [None]
  - Diarrhoea [None]
  - Neutropenia [None]
  - Dehydration [None]
  - Confusional state [None]
  - Mental status changes [None]
